FAERS Safety Report 23950223 (Version 2)
Quarter: 2024Q2

REPORT INFORMATION
  Report Type: Spontaneous
  Country: GB (occurrence: GB)
  Receive Date: 20240607
  Receipt Date: 20240613
  Transmission Date: 20240716
  Serious: Yes (Hospitalization, Disabling)
  Sender: FDA-Public Use
  Company Number: GB-Eisai-EC-2024-166754

PATIENT
  Age: 83 Year
  Sex: Male

DRUGS (2)
  1. ARICEPT [Suspect]
     Active Substance: DONEPEZIL HYDROCHLORIDE
     Indication: Dementia
     Route: 048
     Dates: start: 20240327, end: 20240522
  2. MEMANTINE [Concomitant]
     Active Substance: MEMANTINE
     Indication: Dementia
     Dosage: DOSE AND FREQUENCY UNKNOWN
     Dates: start: 20210315

REACTIONS (4)
  - Aggression [Not Recovered/Not Resolved]
  - Hallucination [Not Recovered/Not Resolved]
  - Psychomotor hyperactivity [Not Recovered/Not Resolved]
  - Agitation [Not Recovered/Not Resolved]

NARRATIVE: CASE EVENT DATE: 20240101
